FAERS Safety Report 7393290-7 (Version None)
Quarter: 2011Q2

REPORT INFORMATION
  Report Type: 
  Country: None (occurrence: None)
  Receive Date: 20110405
  Receipt Date: 20110328
  Transmission Date: 20111010
  Serious: No
  Sender: FDA-Public Use
  Company Number: US-BIOGENIDEC-2010BI041067

PATIENT
  Age: 58 Year
  Sex: Female

DRUGS (2)
  1. TYSABRI [Suspect]
     Indication: MULTIPLE SCLEROSIS
     Route: 042
     Dates: start: 20070220, end: 20090609
  2. TYSABRI [Suspect]
     Route: 042
     Dates: start: 20100112

REACTIONS (7)
  - FALL [None]
  - DYSURIA [None]
  - GAIT DISTURBANCE [None]
  - DIZZINESS [None]
  - BLOOD URINE PRESENT [None]
  - BALANCE DISORDER [None]
  - URINARY TRACT INFECTION [None]
